FAERS Safety Report 10038176 (Version 1)
Quarter: 2014Q1

REPORT INFORMATION
  Report Type: Spontaneous
  Country: US (occurrence: None)
  Receive Date: 20140306
  Receipt Date: 20140306
  Transmission Date: 20141002
  Serious: Yes (Disabling)
  Sender: FDA-Public Use
  Company Number: 163-21880-13105326

PATIENT
  Age: 92 Year
  Sex: Male

DRUGS (22)
  1. REVLIMID [Suspect]
     Indication: MYELODYSPLASTIC SYNDROME
     Route: 048
     Dates: start: 20080402
  2. CEPHALEXIN [Concomitant]
  3. ERYTHROMYCIN [Concomitant]
  4. NYSTATIN [Concomitant]
  5. AMIDARONE [Concomitant]
  6. SODIUM CHLORIDE [Concomitant]
  7. HYDROCORTISONE [Concomitant]
  8. ATORVASTATIN [Concomitant]
  9. FLUDROCORTISONE [Concomitant]
  10. PANTOPRAZOLE [Concomitant]
  11. PREDNISONE [Concomitant]
  12. CLOPIDOGREL [Concomitant]
  13. ALLOPURINOL [Concomitant]
  14. FUROSEMIDE [Concomitant]
  15. AZITHROMYCIN [Concomitant]
  16. METOPROLOL [Concomitant]
  17. PLAVIX [Concomitant]
  18. FOLIC ACID [Concomitant]
  19. PROTONIX [Concomitant]
  20. LIPITOR [Concomitant]
  21. POTASSIUM [Concomitant]
  22. MELATONIN [Concomitant]

REACTIONS (2)
  - Cellulitis [None]
  - Skin disorder [None]
